FAERS Safety Report 7864647-2 (Version None)
Quarter: 2011Q4

REPORT INFORMATION
  Report Type: 
  Country: None (occurrence: None)
  Receive Date: 20111025
  Receipt Date: 20111018
  Transmission Date: 20120403
  Serious: Yes (Hospitalization, Other)
  Sender: FDA-Public Use
  Company Number: GER/UKI/10/0011586

PATIENT
  Age: 33 Year
  Sex: Male

DRUGS (2)
  1. SERTRALINE HYDROCHLORIDE [Suspect]
     Indication: SCHIZOPHRENIA
     Dosage: 50 MG
  2. RISPERIDONE [Suspect]
     Indication: SCHIZOPHRENIA
     Dosage: 2 MG

REACTIONS (7)
  - RESPIRATORY FAILURE [None]
  - RED BLOOD CELL SEDIMENTATION RATE INCREASED [None]
  - EOSINOPHILIC PNEUMONIA [None]
  - CLUBBING [None]
  - RHEUMATOID FACTOR POSITIVE [None]
  - PULMONARY FIBROSIS [None]
  - PNEUMOTHORAX [None]
